FAERS Safety Report 20991331 (Version 1)
Quarter: 2022Q2

REPORT INFORMATION
  Report Type: Spontaneous
  Country: FR (occurrence: None)
  Receive Date: 20220622
  Receipt Date: 20220622
  Transmission Date: 20220721
  Serious: Yes (Hospitalization)
  Sender: FDA-Public Use
  Company Number: FR-Orion Corporation ORION PHARMA-TREX2022-0113

PATIENT
  Age: 91 Year
  Sex: Female

DRUGS (8)
  1. METHOTREXATE [Suspect]
     Active Substance: METHOTREXATE
     Indication: Prescription drug used without a prescription
     Dosage: STRENGTH: 2.5 MG
     Route: 048
     Dates: start: 20220213, end: 20220213
  2. ATENOLOL [Suspect]
     Active Substance: ATENOLOL
     Indication: Prescription drug used without a prescription
     Dosage: STRENGTH: 100 MG
     Route: 048
     Dates: start: 20220213, end: 20220213
  3. HYDROCHLOROTHIAZIDE\IRBESARTAN [Suspect]
     Active Substance: HYDROCHLOROTHIAZIDE\IRBESARTAN
     Indication: Prescription drug used without a prescription
     Dosage: STRENGTH: 150 MG/12.5 MG
     Route: 048
     Dates: start: 20220213, end: 20220213
  4. POTASSIUM CHLORIDE [Suspect]
     Active Substance: POTASSIUM CHLORIDE
     Indication: Prescription drug used without a prescription
     Route: 048
     Dates: start: 20220213, end: 20220213
  5. FOLIC ACID [Concomitant]
     Active Substance: FOLIC ACID
     Dosage: STRENGTH: 5 MG
     Route: 065
  6. CORDARONE [Concomitant]
     Active Substance: AMIODARONE HYDROCHLORIDE
     Dosage: STRENGTH: 200
     Route: 065
  7. IRBESARTAN [Concomitant]
     Active Substance: IRBESARTAN
     Dosage: STRENGTH: 75 MG
     Route: 065
  8. LEVOTHYRX [Concomitant]
     Dosage: STRENGTH:75 MICROGRAM
     Route: 065

REACTIONS (5)
  - Bradycardia [Recovered/Resolved]
  - Wrong patient received product [Recovered/Resolved]
  - Fatigue [Recovered/Resolved]
  - Renal failure [Recovered/Resolved]
  - Extrasystoles [Recovered/Resolved]

NARRATIVE: CASE EVENT DATE: 20220213
